FAERS Safety Report 4770188-1 (Version None)
Quarter: 2005Q3

REPORT INFORMATION
  Report Type: 
  Country: None (occurrence: None)
  Receive Date: 20050915
  Receipt Date: 20050907
  Transmission Date: 20060218
  Serious: Yes (Hospitalization)
  Sender: FDA-Public Use
  Company Number: JP-MERCK-0509USA01244

PATIENT
  Age: 87 Year
  Sex: Female

DRUGS (11)
  1. COZAAR [Suspect]
     Indication: CARDIAC FAILURE
     Route: 048
  2. ISOSORBIDE MONONITRATE [Concomitant]
     Route: 048
  3. ASPIRIN [Concomitant]
     Route: 065
  4. ALDACTONE [Concomitant]
     Route: 048
  5. SELBEX [Concomitant]
     Route: 048
  6. NEUROTROPIN [Concomitant]
     Route: 065
  7. ASPIRIN [Concomitant]
     Route: 065
  8. LAFUTIDINE [Suspect]
     Route: 048
  9. LASIX [Concomitant]
     Route: 065
  10. RHYTHMY [Concomitant]
     Route: 048
  11. VERAPAMIL [Concomitant]
     Route: 065

REACTIONS (2)
  - EOSINOPHIL COUNT INCREASED [None]
  - RESPIRATORY DISORDER [None]
